FAERS Safety Report 6255553-8 (Version None)
Quarter: 2009Q3

REPORT INFORMATION
  Report Type: 
  Country: None (occurrence: None)
  Receive Date: 20090702
  Receipt Date: 20090618
  Transmission Date: 20100115
  Serious: Yes (Hospitalization)
  Sender: FDA-Public Use
  Company Number: US-GENENTECH-285506

PATIENT
  Sex: Female

DRUGS (13)
  1. AVASTIN [Suspect]
     Indication: METASTATIC GASTRIC CANCER
     Dosage: 7.5 MG/KG, UNK
     Dates: start: 20080903, end: 20081217
  2. OXALIPLATIN [Suspect]
     Indication: METASTATIC GASTRIC CANCER
     Dosage: 75 MG/M2, UNK
     Dates: start: 20080903, end: 20081217
  3. DOCETAXEL [Suspect]
     Indication: METASTATIC GASTRIC CANCER
     Dosage: 55 MG/M2, UNK
     Dates: start: 20080903, end: 20081217
  4. PARACETAMOL [Concomitant]
     Indication: DRUG USE FOR UNKNOWN INDICATION
  5. BONIVA [Concomitant]
     Indication: DRUG USE FOR UNKNOWN INDICATION
  6. COMPAZINE [Concomitant]
     Indication: DRUG USE FOR UNKNOWN INDICATION
  7. METOPROLOL SUCCINATE [Concomitant]
     Indication: DRUG USE FOR UNKNOWN INDICATION
  8. CRESTOR [Concomitant]
     Indication: DRUG USE FOR UNKNOWN INDICATION
  9. OMEPRAZOLE [Concomitant]
     Indication: DRUG USE FOR UNKNOWN INDICATION
  10. MIRALAX [Concomitant]
     Indication: DRUG USE FOR UNKNOWN INDICATION
  11. RELPAX [Concomitant]
     Indication: DRUG USE FOR UNKNOWN INDICATION
  12. SENNA [Concomitant]
     Indication: DRUG USE FOR UNKNOWN INDICATION
  13. SIMETHICONE [Concomitant]
     Indication: DRUG USE FOR UNKNOWN INDICATION

REACTIONS (5)
  - ABDOMINAL PAIN [None]
  - FREQUENT BOWEL MOVEMENTS [None]
  - PELVIC PAIN [None]
  - PERITONITIS BACTERIAL [None]
  - SMALL INTESTINAL OBSTRUCTION [None]
